FAERS Safety Report 8834897 (Version 1)
Quarter: 2012Q4

REPORT INFORMATION
  Report Type: 
  Country: US (occurrence: US)
  Receive Date: 20121011
  Receipt Date: 20121011
  Transmission Date: 20130627
  Serious: No
  Sender: FDA-Public Use
  Company Number: US-BIOGENIDEC-2012BI042037

PATIENT
  Sex: Female

DRUGS (10)
  1. TYSABRI [Suspect]
     Indication: MULTIPLE SCLEROSIS
     Route: 042
     Dates: start: 20071030
  2. COZAAR [Concomitant]
     Indication: HYPERTENSION
  3. ULTRAM [Concomitant]
     Indication: ARTHRALGIA
  4. MOTRIN [Concomitant]
     Indication: ARTHRALGIA
  5. STEROID INJECTIONS [Concomitant]
     Indication: ARTHRALGIA
  6. WELLBUTRIN [Concomitant]
     Indication: DEPRESSION
  7. CELEXA [Concomitant]
     Indication: DEPRESSION
  8. DARVOCET [Concomitant]
     Indication: PAIN
  9. VICODIN [Concomitant]
     Indication: HEADACHE
  10. VICODIN [Concomitant]
     Indication: PAIN

REACTIONS (11)
  - Bladder spasm [Not Recovered/Not Resolved]
  - Deafness [Not Recovered/Not Resolved]
  - Muscle spasms [Recovered/Resolved]
  - Dysarthria [Recovered/Resolved]
  - Balance disorder [Recovered/Resolved]
  - Vision blurred [Recovered/Resolved]
  - Depression [Not Recovered/Not Resolved]
  - Diplopia [Recovered/Resolved]
  - Constipation [Recovered/Resolved]
  - Headache [Recovered/Resolved]
  - Hypotension [Recovered/Resolved]
